FAERS Safety Report 8620022-4 (Version None)
Quarter: 2012Q3

REPORT INFORMATION
  Report Type: 
  Country: None (occurrence: None)
  Receive Date: 20120824
  Receipt Date: 20120822
  Transmission Date: 20120928
  Serious: Yes (Hospitalization, Other)
  Sender: FDA-Public Use
  Company Number: PHHY2011DE114679

PATIENT
  Sex: Male

DRUGS (1)
  1. GILENYA [Suspect]
     Indication: MULTIPLE SCLEROSIS
     Dosage: 0.5 MG, QD
     Route: 048
     Dates: start: 20111208

REACTIONS (12)
  - FALL [None]
  - CONCUSSION [None]
  - PARAESTHESIA [None]
  - ASTHENIA [None]
  - DIZZINESS [None]
  - HYPOTENSION [None]
  - LOSS OF CONSCIOUSNESS [None]
  - LACERATION [None]
  - MUSCULAR WEAKNESS [None]
  - ATAXIA [None]
  - DYSPNOEA [None]
  - GAIT DISTURBANCE [None]
